FAERS Safety Report 4588392-4 (Version None)
Quarter: 2005Q1

REPORT INFORMATION
  Report Type: 
  Country: None (occurrence: None)
  Receive Date: 20050216
  Receipt Date: 20050202
  Transmission Date: 20050727
  Serious: Yes (Hospitalization, Other)
  Sender: FDA-Public Use
  Company Number: USA050188083

PATIENT
  Age: 65 Year
  Sex: Female
  Weight: 83 kg

DRUGS (26)
  1. FORTEO [Suspect]
     Indication: OSTEOPOROSIS
     Dates: start: 20030101
  2. ATENOLOL [Concomitant]
  3. FUROSEMIDE [Concomitant]
  4. KLOR-CON [Concomitant]
  5. SPIRONOLACTONE [Concomitant]
  6. LEXAPRO [Concomitant]
  7. LORAZEPAM [Concomitant]
  8. NASONEX [Concomitant]
  9. ALBUTEROL [Concomitant]
  10. ADVAIR DISKUS 100/50 [Concomitant]
  11. ALLEGRA [Concomitant]
  12. PERI-COLACE [Concomitant]
  13. MILK OF MAGNESIA [Concomitant]
  14. NEXIUM [Concomitant]
  15. MYCELEX [Concomitant]
  16. ZONISAMIDE [Concomitant]
  17. IBUPROFEN [Concomitant]
  18. OXYCODONE HCL [Concomitant]
  19. OXYCONTIN [Concomitant]
  20. ACTIQ [Concomitant]
  21. FERROUS SULFATE TAB [Concomitant]
  22. PROVIGIL [Concomitant]
  23. CIPROFLOXACIN [Concomitant]
  24. AZITHROMYCIN [Concomitant]
  25. SYNTHROID [Concomitant]
  26. COUMADIN [Concomitant]

REACTIONS (6)
  - GASTROINTESTINAL DISORDER [None]
  - MUSCLE SPASMS [None]
  - MYCOBACTERIUM AVIUM COMPLEX INFECTION [None]
  - OSTEOMYELITIS [None]
  - SARCOIDOSIS [None]
  - SPINAL DISORDER [None]
